FAERS Safety Report 9261349 (Version 1)
Quarter: 2013Q2

REPORT INFORMATION
  Report Type: Spontaneous
  Country: DE (occurrence: DE)
  Receive Date: 20130429
  Receipt Date: 20130429
  Transmission Date: 20140414
  Serious: Yes (Other)
  Sender: FDA-Public Use
  Company Number: DE-GLAXOSMITHKLINE-D0079536A

PATIENT
  Age: 45 Year
  Sex: Male
  Weight: 120 kg

DRUGS (2)
  1. LAMICTAL [Suspect]
     Dosage: 3000MG PER DAY
     Route: 048
     Dates: start: 20130421, end: 20130421
  2. NOVALGIN [Suspect]
     Dosage: 1000MG PER DAY
     Route: 048
     Dates: start: 20130421, end: 20130421

REACTIONS (5)
  - Suicide attempt [Unknown]
  - Intentional overdose [Unknown]
  - Convulsion [Unknown]
  - Vomiting [Unknown]
  - Endotracheal intubation [Unknown]
